FAERS Safety Report 7454275 (Version 2)
Quarter: 2013Q2

REPORT INFORMATION
  Report Type: Report from Study
  Country: DE (occurrence: DE)
  Receive Date: 20100706
  Receipt Date: 20130607
  Transmission Date: 20140414
  Serious: Yes (Hospitalization)
  Sender: FDA-Public Use
  Company Number: DE-JNJFOC-20100608560

PATIENT
  Age: 42 Year
  Sex: Female
  Weight: 71 kg

DRUGS (2)
  1. REMICADE [Suspect]
     Indication: CROHN^S DISEASE
     Route: 042
  2. BUDESONIDE [Concomitant]
     Indication: CROHN^S DISEASE
     Dates: start: 200809

REACTIONS (2)
  - Anastomotic stenosis [Not Recovered/Not Resolved]
  - Enteritis [Recovered/Resolved]
